FAERS Safety Report 5908606-5 (Version None)
Quarter: 2008Q3

REPORT INFORMATION
  Report Type: 
  Country: None (occurrence: None)
  Receive Date: 20080930
  Receipt Date: 20080917
  Transmission Date: 20090109
  Serious: Yes (Other)
  Sender: FDA-Public Use
  Company Number: 2008S1009180

PATIENT
  Age: 24 Year
  Sex: Female

DRUGS (2)
  1. AMNESTEEM [Suspect]
     Dosage: 40 MG; TWICE A DAY; ORAL
     Route: 048
     Dates: start: 20080331, end: 20080401
  2. YASIM [Concomitant]

REACTIONS (2)
  - DRUG EXPOSURE DURING PREGNANCY [None]
  - PREGNANCY [None]
